FAERS Safety Report 5019360-6 (Version None)
Quarter: 2006Q2

REPORT INFORMATION
  Report Type: 
  Country: None (occurrence: None)
  Receive Date: 20060531
  Receipt Date: 20060518
  Transmission Date: 20061013
  Serious: Yes (Disabling)
  Sender: FDA-Public Use
  Company Number: 2006065835

PATIENT
  Age: 54 Year
  Sex: Male

DRUGS (1)
  1. METHYLPREDNISOLONE [Suspect]
     Indication: MULTIPLE SCLEROSIS
     Dosage: 1000 MG (UNK 1 D); INTRAVENOUS
     Route: 042

REACTIONS (1)
  - PROGRESSIVE MULTIPLE SCLEROSIS [None]
